FAERS Safety Report 7590005-4 (Version None)
Quarter: 2011Q3

REPORT INFORMATION
  Report Type: 
  Country: None (occurrence: None)
  Receive Date: 20110705
  Receipt Date: 20110627
  Transmission Date: 20111222
  Serious: Yes (Other)
  Sender: FDA-Public Use
  Company Number: A0932116A

PATIENT
  Age: 54 Year
  Sex: Female
  Weight: 100 kg

DRUGS (3)
  1. CLONAZEPAM [Concomitant]
     Dosage: 1TAB PER DAY
     Dates: start: 20050101
  2. SERETIDE [Suspect]
     Indication: ASTHMA
     Dosage: 1PUFF TWICE PER DAY
     Route: 065
     Dates: start: 20110610
  3. SERETIDE [Suspect]
     Route: 065
     Dates: start: 20070101, end: 20110610

REACTIONS (4)
  - PRODUCT QUALITY ISSUE [None]
  - DRUG INEFFECTIVE [None]
  - ASTHMA [None]
  - INCORRECT DRUG DOSAGE FORM ADMINISTERED [None]
